FAERS Safety Report 21240600 (Version 1)
Quarter: 2022Q3

REPORT INFORMATION
  Report Type: Spontaneous
  Country: US (occurrence: None)
  Receive Date: 20220823
  Receipt Date: 20220823
  Transmission Date: 20221027
  Serious: No
  Sender: FDA-Public Use
  Company Number: 2022A280355

PATIENT
  Age: 79 Year
  Sex: Female
  Weight: 90.7 kg

DRUGS (1)
  1. FARXIGA [Suspect]
     Active Substance: DAPAGLIFLOZIN PROPANEDIOL
     Indication: Renal disorder
     Route: 048
     Dates: start: 20220723

REACTIONS (5)
  - Fall [Recovered/Resolved]
  - Headache [Unknown]
  - Dizziness [Unknown]
  - Contusion [Unknown]
  - Off label use [Unknown]

NARRATIVE: CASE EVENT DATE: 20220723
